FAERS Safety Report 25754286 (Version 1)
Quarter: 2025Q3

REPORT INFORMATION
  Report Type: Spontaneous
  Country: US (occurrence: US)
  Receive Date: 20250903
  Receipt Date: 20250903
  Transmission Date: 20251021
  Serious: Yes (Hospitalization, Other)
  Sender: ALEXION PHARMACEUTICALS
  Company Number: US-AstraZeneca-CH-00939135A

PATIENT
  Sex: Male

DRUGS (2)
  1. BREZTRI [Suspect]
     Active Substance: BUDESONIDE\FORMOTEROL\GLYCOPYRROLATE
     Route: 065
  2. METOPROLOL SUCCINATE [Suspect]
     Active Substance: METOPROLOL SUCCINATE
     Indication: Atrioventricular block
     Route: 065

REACTIONS (10)
  - Atrioventricular block [Unknown]
  - Dyspnoea [Unknown]
  - Heart rate abnormal [Unknown]
  - Arthritis [Unknown]
  - Emphysema [Unknown]
  - Bronchitis chronic [Unknown]
  - Vomiting [Unknown]
  - Nausea [Unknown]
  - Candida infection [Unknown]
  - Dysphonia [Unknown]
